FAERS Safety Report 25764419 (Version 1)
Quarter: 2025Q3

REPORT INFORMATION
  Report Type: Spontaneous
  Country: US (occurrence: US)
  Receive Date: 20250905
  Receipt Date: 20250905
  Transmission Date: 20251020
  Serious: No
  Sender: DOMPE FARMACEUTICI
  Company Number: US-FARMAPROD-202501-0087

PATIENT
  Sex: Female

DRUGS (6)
  1. OXERVATE [Suspect]
     Active Substance: CENEGERMIN-BKBJ
     Indication: Neurotrophic keratopathy
     Route: 047
     Dates: start: 20241203
  2. PEPCID [Concomitant]
     Active Substance: FAMOTIDINE
  3. CALCIUM\CHOLECALCIFEROL [Concomitant]
     Active Substance: CALCIUM\CHOLECALCIFEROL
  4. MULTIVITAMIN 50 PLUS [Concomitant]
  5. METFORMIN HYDROCHLORIDE [Concomitant]
     Active Substance: METFORMIN HYDROCHLORIDE
  6. LATANOPROST [Concomitant]
     Active Substance: LATANOPROST

REACTIONS (5)
  - Cough [Unknown]
  - Vision blurred [Recovering/Resolving]
  - Eye irritation [Unknown]
  - Eye pain [Unknown]
  - Illness [Unknown]
